FAERS Safety Report 9499697 (Version 2)
Quarter: 2013Q3

REPORT INFORMATION
  Report Type: Spontaneous
  Country: US (occurrence: US)
  Receive Date: 20130905
  Receipt Date: 20130905
  Transmission Date: 20140515
  Serious: Yes (Hospitalization, Other)
  Sender: FDA-Public Use
  Company Number: US-CELGENEUS-163-21880-13071116

PATIENT
  Sex: Female
  Weight: 59 kg

DRUGS (14)
  1. REVLIMID [Suspect]
     Indication: CHRONIC LYMPHOCYTIC LEUKAEMIA
     Dosage: 25 MILLIGRAM
     Route: 048
     Dates: start: 20130530
  2. REVLIMID [Suspect]
     Dosage: 25 MILLIGRAM
     Route: 048
     Dates: start: 2013
  3. VITAMIN D [Concomitant]
     Indication: PRODUCT USED FOR UNKNOWN INDICATION
     Dosage: 1,000 UNIT
     Route: 065
  4. PROCRIT [Concomitant]
     Indication: RENAL FAILURE
     Dosage: 40-60,000 UNITS
     Route: 065
     Dates: start: 2010
  5. PROCRIT [Concomitant]
     Indication: ANAEMIA
  6. COREG [Concomitant]
     Indication: BLOOD PRESSURE
     Dosage: 6.25 MILLIGRAM
     Route: 065
  7. ACYCLOVIR [Concomitant]
     Indication: GOUT
     Dosage: 800 MILLIGRAM
     Route: 065
     Dates: start: 20130530
  8. ASPIRIN [Concomitant]
     Indication: CARDIAC DISORDER
     Dosage: 325 MILLIGRAM
     Route: 065
     Dates: start: 20081117
  9. LISINOPRIL [Concomitant]
     Indication: PRODUCT USED FOR UNKNOWN INDICATION
     Dosage: 10 MILLIGRAM
     Route: 065
     Dates: start: 20130109
  10. ACTONEL [Concomitant]
     Indication: ROUTINE HEALTH MAINTENANCE
     Route: 065
  11. CRESTOR [Concomitant]
     Indication: BLOOD CHOLESTEROL INCREASED
     Route: 065
  12. MIRALAX [Concomitant]
     Indication: CONSTIPATION
     Route: 065
  13. OMEPRAZOLE [Concomitant]
     Indication: GASTROOESOPHAGEAL REFLUX DISEASE
     Route: 065
  14. MS [Concomitant]
     Indication: PAIN
     Route: 065

REACTIONS (4)
  - Laboratory test abnormal [Unknown]
  - Fatigue [Not Recovered/Not Resolved]
  - Haemoglobin decreased [Not Recovered/Not Resolved]
  - Pruritus [Not Recovered/Not Resolved]
